FAERS Safety Report 26212157 (Version 1)
Quarter: 2025Q4

REPORT INFORMATION
  Report Type: Report from Study
  Country: US (occurrence: US)
  Receive Date: 20251230
  Receipt Date: 20251230
  Transmission Date: 20260118
  Serious: Yes (Hospitalization)
  Sender: ABBVIE
  Company Number: US-ABBVIE-6609222

PATIENT
  Sex: Female

DRUGS (2)
  1. LINZESS [Suspect]
     Active Substance: LINACLOTIDE
     Indication: Product used for unknown indication
     Dosage: TAKE ONE CAPSULE BY MOUTH EVERY ONE DAY
     Route: 048
  2. TYMLOS [Concomitant]
     Active Substance: ABALOPARATIDE
     Indication: Product used for unknown indication
     Dosage: ROUTE INJECTION ?START AND STOP DATE UNKNOWN ?TYMLOS 80 MCG DOSE PEN

REACTIONS (2)
  - Urinary tract infection [Recovering/Resolving]
  - Pneumonia [Recovering/Resolving]
